FAERS Safety Report 23761660 (Version 1)
Quarter: 2024Q2

REPORT INFORMATION
  Report Type: Spontaneous
  Country: US (occurrence: None)
  Receive Date: 20240418
  Receipt Date: 20240418
  Transmission Date: 20240716
  Serious: No
  Sender: FDA-Public Use
  Company Number: None

PATIENT
  Sex: Female

DRUGS (1)
  1. HUMIRA [Suspect]
     Active Substance: ADALIMUMAB
     Dates: start: 20200801, end: 20231112

REACTIONS (2)
  - Musculoskeletal disorder [None]
  - Cerebral disorder [None]

NARRATIVE: CASE EVENT DATE: 20231021
